FAERS Safety Report 17168532 (Version 1)
Quarter: 2019Q4

REPORT INFORMATION
  Report Type: Spontaneous
  Country: US (occurrence: US)
  Receive Date: 20191218
  Receipt Date: 20191218
  Transmission Date: 20200122
  Serious: Yes (Other)
  Sender: FDA-Public Use
  Company Number: US-ROCHE-2493743

PATIENT
  Age: 36 Year
  Sex: Female
  Weight: 59.02 kg

DRUGS (1)
  1. OCREVUS [Suspect]
     Active Substance: OCRELIZUMAB
     Indication: RELAPSING MULTIPLE SCLEROSIS
     Route: 042
     Dates: start: 20190701

REACTIONS (5)
  - Oropharyngeal pain [Unknown]
  - Peripheral swelling [Unknown]
  - Condition aggravated [Unknown]
  - Dyspnoea [Unknown]
  - Swelling face [Unknown]

NARRATIVE: CASE EVENT DATE: 20191204
